FAERS Safety Report 17260741 (Version 6)
Quarter: 2020Q1

REPORT INFORMATION
  Report Type: Spontaneous
  Country: CA (occurrence: CA)
  Receive Date: 20200113
  Receipt Date: 20200326
  Transmission Date: 20200409
  Serious: Yes (Other)
  Sender: FDA-Public Use
  Company Number: CA-CELLTRION INC.-2019CA027919

PATIENT

DRUGS (8)
  1. INFLECTRA [Suspect]
     Active Substance: INFLIXIMAB-DYYB
     Dosage: 10 MG/KG, AT 0,1 AND 3 WEEKS, THEN EVERY 4 WEEKS
     Route: 042
     Dates: start: 20200218
  2. PREDNISONE. [Concomitant]
     Active Substance: PREDNISONE
     Dosage: UNK
     Route: 065
  3. INFLECTRA [Suspect]
     Active Substance: INFLIXIMAB-DYYB
     Dosage: 10 MG/KG, AT 0,1 AND 3 WEEKS, THEN EVERY 4 WEEKS
     Route: 042
     Dates: start: 20191230
  4. INFLECTRA [Suspect]
     Active Substance: INFLIXIMAB-DYYB
     Dosage: 10 MG/KG, AT 0,1 AND 3 WEEKS, THEN EVERY 4 WEEKS
     Route: 042
     Dates: start: 20200218
  5. INFLECTRA [Suspect]
     Active Substance: INFLIXIMAB-DYYB
     Indication: COLITIS ULCERATIVE
     Dosage: 10 MG/KG, AT 0,1 AND 3 WEEKS, THEN EVERY 4 WEEKS
     Route: 042
     Dates: start: 20191205
  6. INFLECTRA [Suspect]
     Active Substance: INFLIXIMAB-DYYB
     Dosage: 10 MG/KG, AT 0,1 AND 3 WEEKS, THEN EVERY 4 WEEKS
     Route: 042
     Dates: start: 20191213
  7. INFLECTRA [Suspect]
     Active Substance: INFLIXIMAB-DYYB
     Dosage: 10 MG/KG, AT 0,1 AND 3 WEEKS, THEN EVERY 4 WEEKS
     Route: 042
     Dates: start: 20200124
  8. INFLECTRA [Suspect]
     Active Substance: INFLIXIMAB-DYYB
     Dosage: 10 MG/KG, AT 0,1 AND 3 WEEKS, THEN EVERY 4 WEEKS
     Route: 042
     Dates: start: 20200317

REACTIONS (12)
  - Ocular hyperaemia [Unknown]
  - Ecchymosis [Unknown]
  - Poor venous access [Unknown]
  - Vomiting [Recovering/Resolving]
  - Blood pressure fluctuation [Unknown]
  - Weight increased [Unknown]
  - Intentional product use issue [Unknown]
  - Dizziness postural [Recovered/Resolved]
  - Condition aggravated [Unknown]
  - Off label use [Unknown]
  - Product use issue [Unknown]
  - Diarrhoea [Recovering/Resolving]

NARRATIVE: CASE EVENT DATE: 2019
